FAERS Safety Report 12561820 (Version 4)
Quarter: 2016Q3

REPORT INFORMATION
  Report Type: Spontaneous
  Country: JP (occurrence: JP)
  Receive Date: 20160715
  Receipt Date: 20160819
  Transmission Date: 20161109
  Serious: Yes (Other)
  Sender: FDA-Public Use
  Company Number: JP-009507513-1607JPN006863

PATIENT
  Age: 69 Year
  Sex: Female

DRUGS (3)
  1. ALENDRONATE SODIUM. [Suspect]
     Active Substance: ALENDRONATE SODIUM
     Indication: OSTEOPOROSIS
     Dosage: SINGLE DOSE UNKNOWN, AT 7-DAY INTERVALS
     Route: 048
  2. ESTRIEL [Concomitant]
     Active Substance: ESTRIOL
     Dosage: SINGLE DOSE UNKNOWN, AT 10-DAY INTERVALS
     Route: 067
  3. ALENDRONATE SODIUM. [Suspect]
     Active Substance: ALENDRONATE SODIUM
     Dosage: UNK
     Route: 067
     Dates: start: 20120518

REACTIONS (2)
  - Urethral obstruction [Recovering/Resolving]
  - Incorrect route of drug administration [Unknown]

NARRATIVE: CASE EVENT DATE: 20120518
